FAERS Safety Report 14984316 (Version 2)
Quarter: 2018Q4

REPORT INFORMATION
  Report Type: Report from Study
  Country: FR (occurrence: FR)
  Receive Date: 20180607
  Receipt Date: 20181101
  Transmission Date: 20190204
  Serious: Yes (Death, Hospitalization, Other)
  Sender: FDA-Public Use
  Company Number: FR-JAZZ-2018-FR-004301

PATIENT

DRUGS (2)
  1. DEFITELIO [Suspect]
     Active Substance: DEFIBROTIDE SODIUM
     Indication: VENOOCCLUSIVE DISEASE
     Dosage: 25 MG/KG, QD
     Route: 042
     Dates: start: 20151224, end: 20160103
  2. DEFITELIO [Suspect]
     Active Substance: DEFIBROTIDE SODIUM
     Indication: PROPHYLAXIS
     Dosage: 24.6 MG/KG, QD
     Route: 042
     Dates: start: 20160620

REACTIONS (17)
  - Petechiae [Unknown]
  - Multiple organ dysfunction syndrome [Fatal]
  - Acute lymphocytic leukaemia recurrent [Unknown]
  - Status epilepticus [Unknown]
  - Cardiac murmur [Unknown]
  - Acute respiratory distress syndrome [Unknown]
  - Systemic candida [Fatal]
  - Septic shock [Fatal]
  - Pneumonia aspiration [Unknown]
  - Lymphadenopathy [Unknown]
  - Cystitis haemorrhagic [Unknown]
  - Aplasia [Unknown]
  - Cytomegalovirus infection [Unknown]
  - Hepatosplenomegaly [Unknown]
  - BK virus infection [Unknown]
  - Oedema peripheral [Unknown]
  - Infectious colitis [Unknown]

NARRATIVE: CASE EVENT DATE: 201602
